FAERS Safety Report 8860701 (Version 1)
Quarter: 2012Q4

REPORT INFORMATION
  Report Type: 
  Country: US (occurrence: US)
  Receive Date: 20121025
  Receipt Date: 20121025
  Transmission Date: 20130627
  Serious: No
  Sender: FDA-Public Use
  Company Number: US-ASTRAZENECA-2012SE80372

PATIENT
  Age: 63 Year
  Sex: Female
  Weight: 70.3 kg

DRUGS (4)
  1. NEXIUM [Suspect]
     Indication: DYSPEPSIA
     Route: 048
     Dates: start: 20121003, end: 20121005
  2. NEXIUM [Suspect]
     Indication: FLATULENCE
     Route: 048
     Dates: start: 20121003, end: 20121005
  3. CALCIUM [Concomitant]
  4. VITAMINS [Concomitant]

REACTIONS (4)
  - Abdominal distension [Recovered/Resolved]
  - Diarrhoea [Recovered/Resolved]
  - Headache [Recovered/Resolved]
  - Off label use [Recovered/Resolved]
